FAERS Safety Report 5820402-6 (Version None)
Quarter: 2008Q3

REPORT INFORMATION
  Report Type: 
  Country: None (occurrence: None)
  Receive Date: 20080724
  Receipt Date: 20070628
  Transmission Date: 20090109
  Serious: No
  Sender: FDA-Public Use
  Company Number: A0660709A

PATIENT
  Age: 54 Year
  Sex: Female

DRUGS (5)
  1. AVANDIA [Suspect]
     Dosage: 4MG TWICE PER DAY
     Route: 048
     Dates: end: 20070601
  2. WELLBUTRIN [Concomitant]
  3. LIPITOR [Concomitant]
  4. IRON TABLETS [Concomitant]
  5. ASPIRIN [Concomitant]

REACTIONS (1)
  - MUSCLE SPASMS [None]
